FAERS Safety Report 5887681-0 (Version None)
Quarter: 2008Q3

REPORT INFORMATION
  Report Type: 
  Country: None (occurrence: None)
  Receive Date: 20080916
  Receipt Date: 20080828
  Transmission Date: 20090109
  Serious: Yes (Hospitalization)
  Sender: FDA-Public Use
  Company Number: WAES 0807USA04291

PATIENT
  Age: 80 Year
  Sex: Male
  Weight: 91.6266 kg

DRUGS (8)
  1. JANUVIA [Suspect]
     Indication: DIABETES MELLITUS
     Dosage: 100 MG/DAILY/PO
     Route: 048
     Dates: start: 20070720, end: 20080217
  2. METFORMIN HCL [Suspect]
     Indication: DIABETES MELLITUS
     Dosage: 1000 MG/BID/PO
     Route: 048
     Dates: start: 20070720
  3. TAB GLINDENCLAMID UNK [Concomitant]
     Indication: DIABETES MELLITUS
     Dosage: 10 MG/AM/PO, 5 MG/QHS
     Route: 048
     Dates: start: 20070720
  4. TAB GLINDENCLAMID UNK [Concomitant]
     Indication: DIABETES MELLITUS
     Dosage: 10 MG/AM/PO, 5 MG/QHS
     Route: 048
     Dates: start: 20070720
  5. MONOPRIL [Concomitant]
  6. GLUCOSAMINE [Concomitant]
  7. VERAPAMIL [Concomitant]
  8. VITAMINS (UNSPECIFIED) [Concomitant]

REACTIONS (1)
  - PULMONARY EMBOLISM [None]
